FAERS Safety Report 11818748 (Version 3)
Quarter: 2016Q4

REPORT INFORMATION
  Report Type: Spontaneous
  Country: US (occurrence: US)
  Receive Date: 20151210
  Receipt Date: 20161025
  Transmission Date: 20170206
  Serious: No
  Sender: FDA-Public Use
  Company Number: US-JNJFOC-20150924449

PATIENT
  Age: 8 Year
  Sex: Male
  Weight: 58.06 kg

DRUGS (4)
  1. RISPERIDONE. [Suspect]
     Active Substance: RISPERIDONE
     Indication: PRODUCT USED FOR UNKNOWN INDICATION
     Route: 048
  2. ABILIFY [Concomitant]
     Active Substance: ARIPIPRAZOLE
     Dosage: 5MG, 10MG AND 20MG
     Route: 065
     Dates: start: 20110602, end: 20131224
  3. RISPERDAL [Suspect]
     Active Substance: RISPERIDONE
     Indication: ATTENTION DEFICIT/HYPERACTIVITY DISORDER
     Dosage: 0.5-2 MG FROM 08-OCT-2010 TO 02-JUL-2012, 0.5 MG FROM 28-MAR-2008 TO 12-JUN-2008,
     Route: 048
     Dates: start: 200803, end: 200901
  4. RISPERDAL [Suspect]
     Active Substance: RISPERIDONE
     Indication: ATTENTION DEFICIT/HYPERACTIVITY DISORDER
     Dosage: 0.5-1 MG FROM 17-JUL-2008 TO 19-JAN-2010,1MG FROM 18-FEB-2010
     Route: 048
     Dates: start: 200902, end: 201208

REACTIONS (3)
  - Product use issue [Unknown]
  - Gynaecomastia [Unknown]
  - Off label use [Unknown]

NARRATIVE: CASE EVENT DATE: 200803
